FAERS Safety Report 21248016 (Version 1)
Quarter: 2022Q3

REPORT INFORMATION
  Report Type: Spontaneous
  Country: US (occurrence: US)
  Receive Date: 20220824
  Receipt Date: 20220824
  Transmission Date: 20221027
  Serious: No
  Sender: FDA-Public Use
  Company Number: US-PFIZER INC-202201075324

PATIENT
  Age: 66 Year
  Sex: Female

DRUGS (6)
  1. PAXLOVID [Suspect]
     Active Substance: NIRMATRELVIR\RITONAVIR
     Indication: COVID-19 treatment
     Dosage: UNK
     Route: 048
     Dates: start: 20220819, end: 20220820
  2. HERBALS [Concomitant]
     Active Substance: HERBALS
     Dosage: UNK
  3. LOSARTAN [Concomitant]
     Active Substance: LOSARTAN
     Dosage: UNK
  4. BILBERRY [VACCINIUM MYRTILLUS] [Concomitant]
     Dosage: UNK
  5. LUTEIN [Concomitant]
     Active Substance: LUTEIN
     Dosage: UNK
  6. ZINC [Concomitant]
     Active Substance: ZINC
     Dosage: UNK

REACTIONS (3)
  - Urticaria [Recovered/Resolved]
  - Pharyngeal swelling [Recovered/Resolved]
  - Dysphagia [Recovered/Resolved]

NARRATIVE: CASE EVENT DATE: 20220820
